FAERS Safety Report 22001921 (Version 2)
Quarter: 2023Q2

REPORT INFORMATION
  Report Type: Spontaneous
  Country: JP (occurrence: JP)
  Receive Date: 20230216
  Receipt Date: 20230612
  Transmission Date: 20230721
  Serious: Yes (Other)
  Sender: FDA-Public Use
  Company Number: JP-SA-2023SA051921

PATIENT
  Age: 69 Year
  Sex: Male

DRUGS (3)
  1. DUPIXENT [Suspect]
     Active Substance: DUPILUMAB
     Indication: Dermatitis atopic
     Dosage: DAILY DOSE: 1
     Route: 058
  2. NAFTOPIDIL [Concomitant]
     Active Substance: NAFTOPIDIL
     Indication: Product used for unknown indication
     Route: 048
  3. CHIMAPHILA UMBELLATA EXTRACT;EQUISETUM ARVENSE EXTRACT;POPULUS TREMULO [Concomitant]
     Indication: Product used for unknown indication
     Route: 048

REACTIONS (1)
  - Prostate cancer [Unknown]
